FAERS Safety Report 6983271-7 (Version None)
Quarter: 2010Q3

REPORT INFORMATION
  Report Type: 
  Country: None (occurrence: None)
  Receive Date: 20100914
  Receipt Date: 20100720
  Transmission Date: 20110219
  Serious: Yes (Other)
  Sender: FDA-Public Use
  Company Number: US-PFIZER INC-2010091247

PATIENT
  Sex: Female
  Weight: 82.54 kg

DRUGS (5)
  1. LYRICA [Suspect]
     Indication: FIBROMYALGIA
     Dosage: 50 MG, 2X/DAY
  2. SYNTHROID [Concomitant]
     Indication: THYROID DISORDER
     Dosage: 175 UG, 1X/DAY
  3. PROTONIX [Concomitant]
     Indication: GASTROOESOPHAGEAL REFLUX DISEASE
     Dosage: 40 MG, 1X/DAY
  4. ZOLOFT [Concomitant]
     Indication: DEPRESSION
     Dosage: 200 MG, 1X/DAY
  5. ZOLOFT [Concomitant]
     Indication: PANIC ATTACK

REACTIONS (3)
  - IMPAIRED DRIVING ABILITY [None]
  - SOMNOLENCE [None]
  - WEIGHT INCREASED [None]
